FAERS Safety Report 10979783 (Version 19)
Quarter: 2020Q2

REPORT INFORMATION
  Report Type: Report from Study
  Country: US (occurrence: US)
  Receive Date: 20150402
  Receipt Date: 20200513
  Transmission Date: 20200713
  Serious: Yes (Hospitalization, Other)
  Sender: FDA-Public Use
  Company Number: US-ACTELION-A-NJ2015-114961

PATIENT
  Sex: Female
  Weight: 77.55 kg

DRUGS (8)
  1. VELETRI [Suspect]
     Active Substance: EPOPROSTENOL
     Dosage: 73 NG/KG, PER MIN
     Route: 042
     Dates: start: 20110504
  2. ADEMPAS [Suspect]
     Active Substance: RIOCIGUAT
     Indication: PRODUCT USED FOR UNKNOWN INDICATION
     Dosage: UNK
     Route: 065
  3. TRACLEER [Suspect]
     Active Substance: BOSENTAN
     Dosage: 125 MG, BID
     Route: 048
     Dates: start: 20120228
  4. VELETRI [Suspect]
     Active Substance: EPOPROSTENOL
     Dosage: 60 NG/KG, PER MIN
     Route: 042
     Dates: start: 20110504
  5. COUMADIN [Concomitant]
     Active Substance: WARFARIN SODIUM
  6. VELETRI [Suspect]
     Active Substance: EPOPROSTENOL
     Indication: PULMONARY ARTERIAL HYPERTENSION
     Dosage: 73 NG/KG, PER MIN
     Route: 042
  7. TRACLEER [Suspect]
     Active Substance: BOSENTAN
     Indication: PULMONARY ARTERIAL HYPERTENSION
     Dosage: 125 MG, BID
     Route: 048
     Dates: start: 20120228
  8. RIOCIGUAT. [Concomitant]
     Active Substance: RIOCIGUAT

REACTIONS (27)
  - Device related infection [Unknown]
  - Ear discomfort [Not Recovered/Not Resolved]
  - Pneumonia [Unknown]
  - Nasopharyngitis [Not Recovered/Not Resolved]
  - Rales [Unknown]
  - Diarrhoea [Not Recovered/Not Resolved]
  - Pyrexia [Unknown]
  - Catheter site swelling [Unknown]
  - Catheter site erythema [Unknown]
  - Pulse pressure increased [Unknown]
  - Fatigue [Unknown]
  - Catheter site inflammation [Unknown]
  - Nasal congestion [Not Recovered/Not Resolved]
  - Hypotension [Unknown]
  - Respiratory tract infection [Unknown]
  - Cough [Unknown]
  - Dyspnoea [Unknown]
  - Flushing [Not Recovered/Not Resolved]
  - Clostridium difficile infection [Unknown]
  - Catheter site pain [Unknown]
  - Pain in extremity [Not Recovered/Not Resolved]
  - Unevaluable event [Unknown]
  - Dyspnoea exertional [Unknown]
  - Dyspepsia [Not Recovered/Not Resolved]
  - Pain in jaw [Not Recovered/Not Resolved]
  - Device dislocation [Unknown]
  - Pulmonary sarcoidosis [Unknown]
